FAERS Safety Report 6955643-8 (Version None)
Quarter: 2010Q3

REPORT INFORMATION
  Report Type: 
  Country: None (occurrence: None)
  Receive Date: 20100830
  Receipt Date: 20100827
  Transmission Date: 20110219
  Serious: Yes (Hospitalization, Other)
  Sender: FDA-Public Use
  Company Number: HK-PFIZER INC-2010095591

PATIENT
  Age: 80 Year
  Sex: Female

DRUGS (2)
  1. CELEBREX [Suspect]
     Indication: RHEUMATOID ARTHRITIS
     Dosage: 200 MG, 2X/DAY
     Dates: start: 20100701, end: 20100701
  2. COLCHICINE [Concomitant]
     Dosage: UNK
     Dates: end: 20100701

REACTIONS (5)
  - ARTHRALGIA [None]
  - BLOOD POTASSIUM ABNORMAL [None]
  - BLOOD SODIUM ABNORMAL [None]
  - FLUID RETENTION [None]
  - INAPPROPRIATE ANTIDIURETIC HORMONE SECRETION [None]
